FAERS Safety Report 10423149 (Version 2)
Quarter: 2014Q4

REPORT INFORMATION
  Report Type: Spontaneous
  Country: US (occurrence: None)
  Receive Date: 20140722
  Receipt Date: 20141121
  Transmission Date: 20150528
  Serious: No
  Sender: FDA-Public Use
  Company Number: 163-10004-14060828

PATIENT
  Age: 47 Year
  Sex: Female

DRUGS (1)
  1. OTEZLA [Suspect]
     Active Substance: APREMILAST
     Indication: PSORIATIC ARTHROPATHY
     Dosage: 30 MG, 1 IN 1 D, PO
     Route: 048
     Dates: start: 20140529, end: 20140531

REACTIONS (6)
  - Nausea [None]
  - Abdominal pain upper [None]
  - Decreased appetite [None]
  - Diarrhoea [None]
  - Depression [None]
  - Vomiting [None]

NARRATIVE: CASE EVENT DATE: 20140531
